FAERS Safety Report 5107253-5 (Version None)
Quarter: 2006Q3

REPORT INFORMATION
  Report Type: 
  Country: None (occurrence: None)
  Receive Date: 20060914
  Receipt Date: 20060901
  Transmission Date: 20061208
  Serious: Yes (Death, Hospitalization)
  Sender: FDA-Public Use
  Company Number: HQWYE266901SEP06

PATIENT
  Age: 73 Year
  Sex: Male

DRUGS (12)
  1. CORDARONE [Suspect]
     Indication: ATRIAL FIBRILLATION
     Dosage: UNSPECIFIED
     Dates: end: 20060701
  2. ASPIRIN [Concomitant]
  3. LORATADINE [Concomitant]
  4. SODIUM CHLORIDE 0.9% [Concomitant]
  5. LANOXIN [Concomitant]
  6. DILTIAZEM [Concomitant]
  7. NYSTATIN [Concomitant]
  8. FUROSEMIDE [Concomitant]
  9. FLUNISOLIDE (FLUNISOLIDE) [Concomitant]
  10. CALCIUM CARBONATE (CALCIUM CARBONATE) [Concomitant]
  11. OMEPRAZOLE [Concomitant]
  12. TERAZOSIN HYDROCHLORIDE [Concomitant]

REACTIONS (5)
  - CHRONIC OBSTRUCTIVE PULMONARY DISEASE [None]
  - CONDITION AGGRAVATED [None]
  - EMPHYSEMA [None]
  - PLEURAL FIBROSIS [None]
  - PULMONARY FIBROSIS [None]
